FAERS Safety Report 8823673 (Version 2)
Quarter: 2012Q4

REPORT INFORMATION
  Report Type: 
  Country: US (occurrence: US)
  Receive Date: 20121003
  Receipt Date: 20121026
  Transmission Date: 20130627
  Serious: No
  Sender: FDA-Public Use
  Company Number: US-VERTEX PHARMACEUTICAL INC.-2012-021120

PATIENT
  Age: 45 None
  Sex: Male
  Weight: 89 kg

DRUGS (9)
  1. VX-950 [Suspect]
     Indication: HEPATITIS C
     Dosage: 750 mg, tid
     Route: 048
     Dates: start: 20120904
  2. PEGASYS [Concomitant]
     Indication: HEPATITIS C
     Dosage: 180 ?g, UNK
     Route: 058
     Dates: start: 20120904
  3. RIBASPHERE [Concomitant]
     Indication: HEPATITIS C
     Dosage: 600 mg, bid
     Dates: start: 20120904
  4. VICOPROFEN [Concomitant]
     Dosage: UNK, qid
  5. TOPROL [Concomitant]
     Dosage: 100 mg, UNK
  6. ALPRAZOLAM [Concomitant]
     Dosage: 0.25 mg, UNK
  7. VITAMIN E                          /00110501/ [Concomitant]
     Dosage: 400 unit
  8. MILK THISTLE [Concomitant]
     Dosage: 175 mg, qd
  9. MULTIPLE VITAMINS [Concomitant]
     Dosage: UNK, qd

REACTIONS (7)
  - Chromaturia [Unknown]
  - Depressed mood [Unknown]
  - Pain [Unknown]
  - Dizziness [Unknown]
  - Paraesthesia [Unknown]
  - Rash [Unknown]
  - Blister [Unknown]
